FAERS Safety Report 9200248 (Version 1)
Quarter: 2013Q1

REPORT INFORMATION
  Report Type: Spontaneous
  Country: US (occurrence: US)
  Receive Date: 20130329
  Receipt Date: 20130329
  Transmission Date: 20140127
  Serious: No
  Sender: FDA-Public Use
  Company Number: US-GALDERMA-US12415672

PATIENT
  Age: 72 Year
  Sex: Female

DRUGS (2)
  1. CLOBETASOL PROPIONATE [Suspect]
     Route: 061
  2. CLOBETASOL PROPIONATE [Suspect]
     Route: 061

REACTIONS (2)
  - Condition aggravated [Unknown]
  - Product substitution issue [None]
